FAERS Safety Report 5168669-4 (Version None)
Quarter: 2006Q4

REPORT INFORMATION
  Report Type: 
  Country: None (occurrence: None)
  Receive Date: 20061211
  Receipt Date: 20061208
  Transmission Date: 20070319
  Serious: Yes (Life-Threatening, Hospitalization)
  Sender: FDA-Public Use
  Company Number: PHNU2006DE04091

PATIENT
  Age: 65 Year
  Sex: Female
  Weight: 94 kg

DRUGS (1)
  1. LEPONEX [Suspect]
     Indication: PSYCHOTIC DISORDER
     Dosage: UP TO 300 MG/DAY
     Route: 048

REACTIONS (6)
  - AGRANULOCYTOSIS [None]
  - INTUBATION [None]
  - LEUKOPENIA [None]
  - LIFE SUPPORT [None]
  - PYREXIA [None]
  - SEPSIS [None]
